FAERS Safety Report 5256229-6 (Version None)
Quarter: 2007Q1

REPORT INFORMATION
  Report Type: 
  Country: None (occurrence: None)
  Receive Date: 20070302
  Receipt Date: 20070302
  Transmission Date: 20070707
  Serious: Yes (Hospitalization)
  Sender: FDA-Public Use
  Company Number: None

PATIENT
  Sex: Female
  Weight: 65.9 kg

DRUGS (3)
  1. AVASTIN [Suspect]
     Indication: ANGIOSARCOMA
     Dosage: 989 MG 3WEEKS IV
     Route: 042
     Dates: start: 20070208, end: 20070208
  2. CARDIZEM [Concomitant]
  3. TYLENOL [Concomitant]

REACTIONS (7)
  - CYSTITIS [None]
  - FLUID RETENTION [None]
  - PAIN IN EXTREMITY [None]
  - PNEUMONIA [None]
  - PYREXIA [None]
  - THROMBOPHLEBITIS [None]
  - ULTRASOUND SCAN ABNORMAL [None]
